FAERS Safety Report 18762120 (Version 14)
Quarter: 2022Q3

REPORT INFORMATION
  Report Type: Report from Study
  Country: AR (occurrence: AR)
  Receive Date: 20210120
  Receipt Date: 20220815
  Transmission Date: 20221027
  Serious: Yes (Hospitalization, Other)
  Sender: FDA-Public Use
  Company Number: NVSC2019AR043934

PATIENT
  Age: 60 Year
  Sex: Female

DRUGS (3)
  1. TASIGNA [Suspect]
     Active Substance: NILOTINIB
     Indication: Philadelphia positive chronic myeloid leukaemia
     Dosage: 800 MG, BID
     Route: 048
     Dates: start: 20070101
  2. TASIGNA [Suspect]
     Active Substance: NILOTINIB
     Dosage: 300 MG, QD
     Route: 048
     Dates: start: 20070101
  3. TASIGNA [Suspect]
     Active Substance: NILOTINIB
     Dosage: 400 MG, BID
     Route: 048

REACTIONS (29)
  - Chronic obstructive pulmonary disease [Not Recovered/Not Resolved]
  - Depression [Not Recovered/Not Resolved]
  - White blood cell count increased [Unknown]
  - Asthma [Unknown]
  - Critical illness [Unknown]
  - Neutropenia [Unknown]
  - Chronic myeloid leukaemia [Not Recovered/Not Resolved]
  - Malignant neoplasm progression [Unknown]
  - Diabetes mellitus [Unknown]
  - Bradykinesia [Unknown]
  - General physical health deterioration [Unknown]
  - Platelet count increased [Not Recovered/Not Resolved]
  - Hepatomegaly [Unknown]
  - Immune system disorder [Unknown]
  - Full blood count increased [Not Recovered/Not Resolved]
  - Ulcer [Unknown]
  - Fall [Unknown]
  - Joint injury [Unknown]
  - Secretion discharge [Unknown]
  - Dizziness [Unknown]
  - Confusional state [Not Recovered/Not Resolved]
  - Malaise [Unknown]
  - Abdominal discomfort [Unknown]
  - Memory impairment [Unknown]
  - Furuncle [Unknown]
  - Blood cholesterol abnormal [Unknown]
  - Product supply issue [Unknown]
  - Incorrect dose administered [Unknown]
  - Product dose omission issue [Unknown]

NARRATIVE: CASE EVENT DATE: 20190101
